FAERS Safety Report 4357803-1 (Version None)
Quarter: 2004Q2

REPORT INFORMATION
  Report Type: 
  Country: None (occurrence: None)
  Receive Date: 20040513
  Receipt Date: 20040503
  Transmission Date: 20050107
  Serious: Yes (Death)
  Sender: FDA-Public Use
  Company Number: US-MERCK-0405USA00168

PATIENT
  Age: 10 Year
  Sex: Male

DRUGS (7)
  1. AMPHOTERICIN B [Concomitant]
     Indication: SKIN LESION
     Route: 065
  2. CANCIDAS [Suspect]
     Indication: SKIN LESION
     Route: 041
  3. CANCIDAS [Suspect]
     Route: 041
  4. DACLIZUMAB [Concomitant]
     Indication: GRAFT VERSUS HOST DISEASE
     Route: 065
  5. INFLIXIMAB [Concomitant]
     Indication: GRAFT VERSUS HOST DISEASE
     Route: 065
  6. VORICONAZOLE [Suspect]
     Indication: SKIN LESION
     Route: 041
  7. VORICONAZOLE [Suspect]
     Route: 041

REACTIONS (2)
  - DRUG INTERACTION [None]
  - FUNGAL INFECTION [None]
